FAERS Safety Report 16447221 (Version 1)
Quarter: 2019Q2

REPORT INFORMATION
  Report Type: Spontaneous
  Country: DK (occurrence: DK)
  Receive Date: 20190618
  Receipt Date: 20190618
  Transmission Date: 20190711
  Serious: Yes (Disabling)
  Sender: FDA-Public Use
  Company Number: DK-ABBVIE-19K-044-2821170-00

PATIENT
  Age: 46 Year
  Sex: Female

DRUGS (2)
  1. DIPRODERM [Concomitant]
     Active Substance: BETAMETHASONE DIPROPIONATE
     Indication: PSORIASIS
     Dosage: STYRKE: 0,05 %. DOSIS: IKKE OPLYST.
     Route: 003
     Dates: start: 20130411, end: 20180425
  2. HUMIRA [Suspect]
     Active Substance: ADALIMUMAB
     Indication: PSORIASIS
     Dosage: STYRKE: 40MG/0,8 ML. DOSIS: UKENDT.
     Route: 058
     Dates: start: 20140428, end: 20150430

REACTIONS (5)
  - Coordination abnormal [Not Recovered/Not Resolved]
  - Sensory disturbance [Not Recovered/Not Resolved]
  - Multiple sclerosis [Not Recovered/Not Resolved]
  - Diplopia [Unknown]
  - Paraesthesia [Not Recovered/Not Resolved]

NARRATIVE: CASE EVENT DATE: 20150430
